FAERS Safety Report 25239847 (Version 1)
Quarter: 2025Q2

REPORT INFORMATION
  Report Type: Spontaneous
  Country: US (occurrence: US)
  Receive Date: 20250425
  Receipt Date: 20250425
  Transmission Date: 20250717
  Serious: Yes (Other)
  Sender: SPECGX
  Company Number: US-SPECGX-T202500797

PATIENT
  Age: 72 Year
  Sex: Male

DRUGS (13)
  1. ACETAMINOPHEN\HYDROCODONE [Suspect]
     Active Substance: ACETAMINOPHEN\HYDROCODONE
     Indication: Product used for unknown indication
     Route: 065
  2. ASPIRIN [Suspect]
     Active Substance: ASPIRIN
     Indication: Product used for unknown indication
     Route: 065
  3. ATORVASTATIN [Suspect]
     Active Substance: ATORVASTATIN
     Indication: Product used for unknown indication
     Route: 065
  4. GLIPIZIDE [Suspect]
     Active Substance: GLIPIZIDE
     Indication: Product used for unknown indication
     Route: 065
  5. LANTUS [Suspect]
     Active Substance: INSULIN GLARGINE
     Indication: Product used for unknown indication
     Route: 065
  6. METFORMIN [Suspect]
     Active Substance: METFORMIN HYDROCHLORIDE
     Indication: Product used for unknown indication
     Route: 065
  7. LIRAGLUTIDE [Suspect]
     Active Substance: LIRAGLUTIDE
     Indication: Product used for unknown indication
     Route: 065
  8. NUX VOMICA [Suspect]
     Active Substance: STRYCHNOS NUX-VOMICA SEED
     Indication: Abdominal pain
     Route: 065
  9. NUX VOMICA [Suspect]
     Active Substance: STRYCHNOS NUX-VOMICA SEED
     Indication: Nausea
  10. ARNICA MONTANA (HOMEOPATHIC) [Suspect]
     Active Substance: HOMEOPATHICS
     Indication: Abdominal pain
     Route: 065
  11. ARNICA MONTANA (HOMEOPATHIC) [Suspect]
     Active Substance: HOMEOPATHICS
     Indication: Nausea
  12. CHELIDONIUM MAJUS [Suspect]
     Active Substance: CHELIDONIUM MAJUS
     Indication: Abdominal pain
     Route: 065
  13. CHELIDONIUM MAJUS [Suspect]
     Active Substance: CHELIDONIUM MAJUS
     Indication: Nausea

REACTIONS (3)
  - Eosinophilic hepatitis [Unknown]
  - Hepatocellular injury [Unknown]
  - Jaundice [Unknown]
